FAERS Safety Report 13800434 (Version 3)
Quarter: 2017Q3

REPORT INFORMATION
  Report Type: Spontaneous
  Country: JP (occurrence: JP)
  Receive Date: 20170727
  Receipt Date: 20170814
  Transmission Date: 20171127
  Serious: Yes (Death, Other)
  Sender: FDA-Public Use
  Company Number: JP-BRISTOL-MYERS SQUIBB COMPANY-BMS-2017-067034

PATIENT
  Age: 77 Year
  Sex: Male

DRUGS (1)
  1. OPDIVO [Suspect]
     Active Substance: NIVOLUMAB
     Indication: NON-SMALL CELL LUNG CANCER RECURRENT
     Dosage: 160 MG, Q2WK
     Route: 041
     Dates: start: 20170712, end: 20170712

REACTIONS (3)
  - Blood potassium abnormal [Unknown]
  - Malignant neoplasm progression [Fatal]
  - Cardiac failure [Unknown]

NARRATIVE: CASE EVENT DATE: 201707
